FAERS Safety Report 5401556-2 (Version None)
Quarter: 2007Q3

REPORT INFORMATION
  Report Type: 
  Country: None (occurrence: None)
  Receive Date: 20070718
  Receipt Date: 20070717
  Transmission Date: 20080115
  Serious: Yes (Disabling, Congenital Anomaly)
  Sender: FDA-Public Use
  Company Number: 200712047

PATIENT

DRUGS (1)
  1. RHOPHYLAC (IMMUNOGLOBULIN HUMAN ANTI-RH) (CSL BEHRING) [Suspect]
     Indication: PROPHYLAXIS AGAINST RH ISOIMMUNISATION
     Dosage: 200 UG DAILY IM
     Route: 030

REACTIONS (4)
  - CONGENITAL HAND MALFORMATION [None]
  - DRUG EXPOSURE DURING PREGNANCY [None]
  - FINGER DEFORMITY [None]
  - PHALANGEAL AGENESIS [None]
